FAERS Safety Report 15896447 (Version 2)
Quarter: 2019Q1

REPORT INFORMATION
  Report Type: Spontaneous
  Country: JP (occurrence: JP)
  Receive Date: 20190131
  Receipt Date: 20190207
  Transmission Date: 20190417
  Serious: Yes (Hospitalization)
  Sender: FDA-Public Use
  Company Number: JP-PFIZER INC-2019034316

PATIENT
  Sex: Female

DRUGS (1)
  1. VIBRAMYCIN [Suspect]
     Active Substance: DOXYCYCLINE
     Indication: ACNE
     Dosage: UNK
     Route: 048

REACTIONS (6)
  - Foreign body in respiratory tract [Unknown]
  - Pain [Unknown]
  - Laryngeal ulceration [Unknown]
  - Pharyngeal ulceration [Unknown]
  - Discomfort [Unknown]
  - Neoplasm [Unknown]
